FAERS Safety Report 20719020 (Version 3)
Quarter: 2022Q2

REPORT INFORMATION
  Report Type: Spontaneous
  Country: PT (occurrence: PT)
  Receive Date: 20220418
  Receipt Date: 20220531
  Transmission Date: 20220721
  Serious: Yes (Death, Life-Threatening, Hospitalization, Other)
  Sender: FDA-Public Use
  Company Number: PT-MACLEODS PHARMACEUTICALS US LTD-MAC2022035246

PATIENT

DRUGS (2)
  1. METFORMIN [Suspect]
     Active Substance: METFORMIN HYDROCHLORIDE
     Indication: Diabetes mellitus
     Dosage: 1 MILLIGRAM, TID (FOR MANY YEARS)
     Route: 048
  2. METFORMIN [Suspect]
     Active Substance: METFORMIN HYDROCHLORIDE
     Dosage: 3 GRAM, QD
     Route: 065

REACTIONS (7)
  - Cerebral haemorrhage [Fatal]
  - Acute kidney injury [Not Recovered/Not Resolved]
  - Distributive shock [Recovered/Resolved]
  - Renal impairment [Not Recovered/Not Resolved]
  - Left ventricular dysfunction [Unknown]
  - Myocardial necrosis [Unknown]
  - Lactic acidosis [Recovered/Resolved]
